FAERS Safety Report 15865591 (Version 2)
Quarter: 2022Q1

REPORT INFORMATION
  Report Type: Spontaneous
  Country: DE (occurrence: DE)
  Receive Date: 20190125
  Receipt Date: 20220122
  Transmission Date: 20220423
  Serious: Yes (Hospitalization, Other)
  Sender: FDA-Public Use
  Company Number: DE-AUROBINDO-AUR-APL-2019-002793

PATIENT
  Age: 44 Year
  Sex: Female
  Weight: 58 kg

DRUGS (10)
  1. DARUNAVIR [Suspect]
     Active Substance: DARUNAVIR
     Indication: HIV infection
     Dosage: 1200 MILLIGRAM, ONCE A DAY
     Route: 048
     Dates: start: 20081129
  2. TENOFOVIR DISOPROXIL [Suspect]
     Active Substance: TENOFOVIR DISOPROXIL
     Indication: HIV infection
     Dosage: 245 MILLIGRAM, ONCE A DAY, QD
     Route: 048
     Dates: start: 20081129
  3. ISENTRESS [Suspect]
     Active Substance: RALTEGRAVIR POTASSIUM
     Indication: HIV infection
     Dosage: 400 MILLIGRAM, ONCE A DAY, TID
     Route: 048
     Dates: start: 20081129
  4. ISENTRESS [Suspect]
     Active Substance: RALTEGRAVIR POTASSIUM
     Dosage: 800 MILLIGRAM, DAILY
     Route: 048
     Dates: start: 20081129
  5. NORVIR [Suspect]
     Active Substance: RITONAVIR
     Indication: HIV infection
     Dosage: 100 MILLIGRAM, ONCE A DAY, BID
     Route: 048
     Dates: start: 20081129
  6. NORVIR [Suspect]
     Active Substance: RITONAVIR
     Dosage: 200 MILLIGRAM, ONCE A DAY
     Route: 048
     Dates: start: 20081129
  7. PREZISTA [Suspect]
     Active Substance: DARUNAVIR ETHANOLATE
     Indication: HIV infection
     Dosage: 600 MILLIGRAM, ONCE A DAY, BID
     Route: 048
     Dates: start: 20081129
  8. TRIZIVIR [Suspect]
     Active Substance: ABACAVIR SULFATE\LAMIVUDINE\ZIDOVUDINE
     Indication: HIV infection
     Dosage: DOSE 300-150-300, STRENGTH: 300-150-300 MILLIGRAM
     Route: 048
     Dates: start: 20081129
  9. TRIZIVIR [Suspect]
     Active Substance: ABACAVIR SULFATE\LAMIVUDINE\ZIDOVUDINE
     Dosage: 300-150-300 MG
     Route: 048
     Dates: start: 20081129
  10. VIREAD [Suspect]
     Active Substance: TENOFOVIR DISOPROXIL FUMARATE
     Indication: HIV infection
     Dosage: 245 MILLIGRAM, ONCE A DAY, QD
     Route: 048

REACTIONS (6)
  - Caesarean section [Unknown]
  - Polyhydramnios [Unknown]
  - Drug exposure before pregnancy [Recovered/Resolved]
  - Premature delivery [Recovered/Resolved]
  - Premature labour [Unknown]
  - Pregnancy [Recovered/Resolved]

NARRATIVE: CASE EVENT DATE: 20100810
